FAERS Safety Report 8183359-1 (Version None)
Quarter: 2012Q1

REPORT INFORMATION
  Report Type: 
  Country: None (occurrence: None)
  Receive Date: 20120130
  Receipt Date: 20111006
  Transmission Date: 20120608
  Serious: Yes (Other)
  Sender: FDA-Public Use
  Company Number: 039260

PATIENT
  Sex: Male
  Weight: 62.7 kg

DRUGS (2)
  1. KEPPRA [Suspect]
     Indication: COMPLEX PARTIAL SEIZURES
     Dosage: (750 MG TID ORAL)
     Route: 048
     Dates: start: 20110601
  2. LAMICTAL [Concomitant]

REACTIONS (10)
  - DEPRESSION [None]
  - ANXIETY [None]
  - MANIA [None]
  - TACHYCARDIA [None]
  - AMNESIA [None]
  - SUICIDAL IDEATION [None]
  - DRUG ADMINISTRATION ERROR [None]
  - SOMNOLENCE [None]
  - EMOTIONAL DISTRESS [None]
  - ANGER [None]
